FAERS Safety Report 7424317-1 (Version None)
Quarter: 2011Q2

REPORT INFORMATION
  Report Type: 
  Country: None (occurrence: None)
  Receive Date: 20110419
  Receipt Date: 20110413
  Transmission Date: 20111010
  Serious: No
  Sender: FDA-Public Use
  Company Number: US-B.I. PHARMACEUTICALS,INC./RIDGEFIELD-2011-BP-05755BP

PATIENT
  Sex: Female

DRUGS (6)
  1. TRAVATAN [Concomitant]
     Indication: GLAUCOMA
  2. CARVEDILOL [Concomitant]
     Indication: HEART RATE IRREGULAR
     Dosage: 12.5 MG
  3. PRADAXA [Suspect]
     Indication: HYPERTENSION
  4. NITROGLYCERIN [Concomitant]
     Indication: ANGINA PECTORIS
  5. PRADAXA [Suspect]
     Indication: ANTICOAGULANT THERAPY
     Dosage: 300 MG
     Route: 048
     Dates: start: 20110226
  6. DILTIAZEM [Concomitant]
     Indication: HEART RATE IRREGULAR
     Dosage: 240 MG

REACTIONS (3)
  - BRONCHITIS [None]
  - WHEEZING [None]
  - CHEST PAIN [None]
